FAERS Safety Report 6271302-1 (Version None)
Quarter: 2009Q3

REPORT INFORMATION
  Report Type: 
  Country: None (occurrence: None)
  Receive Date: 20090716
  Receipt Date: 20090716
  Transmission Date: 20100115
  Serious: Yes (Life-Threatening, Hospitalization)
  Sender: FDA-Public Use
  Company Number: None

PATIENT
  Sex: Female
  Weight: 77.1115 kg

DRUGS (1)
  1. TEGRETOL [Suspect]
     Indication: NERVOUS SYSTEM DISORDER
     Dosage: 200MG TWICE A DAY

REACTIONS (5)
  - ABASIA [None]
  - OEDEMA PERIPHERAL [None]
  - ONYCHOMADESIS [None]
  - THERMAL BURN [None]
  - WALKING AID USER [None]
